FAERS Safety Report 24353518 (Version 4)
Quarter: 2024Q4

REPORT INFORMATION
  Report Type: Spontaneous
  Country: CN (occurrence: CN)
  Receive Date: 20240923
  Receipt Date: 20241112
  Transmission Date: 20250115
  Serious: Yes (Other)
  Sender: NOVARTIS
  Company Number: CN-002147023-NVSC2024CN187985

PATIENT
  Age: 35 Year
  Sex: Male

DRUGS (9)
  1. COSENTYX [Suspect]
     Active Substance: SECUKINUMAB
     Indication: Ankylosing spondylitis
     Dosage: 150 MG (EACH TIME) (ONCE AT THE 0, 1ST, 2ND, 3RD, AND 4TH WEEK)
     Route: 058
     Dates: start: 2021
  2. COSENTYX [Suspect]
     Active Substance: SECUKINUMAB
     Dosage: 1 DOSAGE FORM (INJECTION), Q4W
     Route: 058
     Dates: start: 2021, end: 2022
  3. COSENTYX [Suspect]
     Active Substance: SECUKINUMAB
     Dosage: UNK (TWO INJECTIONS (150 MG OF 1 INJECTION)) (EVERY 28 DAYS)
     Route: 058
     Dates: start: 2022
  4. COSENTYX [Suspect]
     Active Substance: SECUKINUMAB
     Dosage: UNK (TWO INJECTIONS (150 MG OF 1 INJECTION)) (EVERY 28 DAYS)
     Route: 058
     Dates: start: 2022
  5. COSENTYX [Suspect]
     Active Substance: SECUKINUMAB
     Dosage: UNK (TWO INJECTIONS (150 MG OF 1 INJECTION)) (EVERY 28 DAYS)
     Route: 058
     Dates: start: 2022
  6. COSENTYX [Suspect]
     Active Substance: SECUKINUMAB
     Dosage: UNK (TWO INJECTIONS (150 MG OF 1 INJECTION)) (EVERY 28 DAYS)
     Route: 058
     Dates: start: 2022
  7. COSENTYX [Suspect]
     Active Substance: SECUKINUMAB
     Dosage: UNK (TWO INJECTIONS (150 MG OF 1 INJECTION)) (EVERY 28 DAYS)
     Route: 058
     Dates: start: 2022
  8. COSENTYX [Suspect]
     Active Substance: SECUKINUMAB
     Dosage: UNK (TWO INJECTIONS (150 MG OF 1 INJECTION)) (EVERY 28 DAYS)
     Route: 058
     Dates: start: 2022
  9. COSENTYX [Suspect]
     Active Substance: SECUKINUMAB
     Dosage: UNK (TWO INJECTIONS (150 MG OF 1 INJECTION)) (EVERY 28 DAYS)
     Route: 058
     Dates: start: 2022

REACTIONS (6)
  - Disease progression [Unknown]
  - Back pain [Recovering/Resolving]
  - Drug ineffective [Unknown]
  - Injection site pain [Unknown]
  - Pain in extremity [Unknown]
  - Suspected product quality issue [Unknown]

NARRATIVE: CASE EVENT DATE: 20240301
